FAERS Safety Report 7794774-X (Version None)
Quarter: 2011Q4

REPORT INFORMATION
  Report Type: 
  Country: None (occurrence: None)
  Receive Date: 20111004
  Receipt Date: 20110928
  Transmission Date: 20120403
  Serious: No
  Sender: FDA-Public Use
  Company Number: US-PFIZER INC-2011231815

PATIENT
  Sex: Male
  Weight: 86 kg

DRUGS (2)
  1. VIAGRA [Suspect]
     Indication: ERECTILE DYSFUNCTION
     Dosage: 100 MG, AS NEEDED
     Route: 048
     Dates: start: 20110916
  2. HYZAAR [Concomitant]
     Indication: HYPERTENSION
     Dosage: UNK

REACTIONS (2)
  - BURNING SENSATION [None]
  - PAIN [None]
